FAERS Safety Report 25031576 (Version 2)
Quarter: 2025Q1

REPORT INFORMATION
  Report Type: Spontaneous
  Country: IE (occurrence: IE)
  Receive Date: 20250303
  Receipt Date: 20250314
  Transmission Date: 20250409
  Serious: Yes (Life-Threatening, Hospitalization)
  Sender: TEVA
  Company Number: IE-TEVA-VS-3304168

PATIENT
  Age: 69 Year
  Sex: Male

DRUGS (5)
  1. ALBUTEROL [Suspect]
     Active Substance: ALBUTEROL
     Indication: Asthma
     Dosage: EVERY 6?HOURS - NEBULIZED
     Route: 055
  2. PIPERACILLIN SODIUM\TAZOBACTAM SODIUM [Suspect]
     Active Substance: PIPERACILLIN SODIUM\TAZOBACTAM SODIUM
     Indication: Asthma
     Route: 065
  3. PREDNISOLONE [Suspect]
     Active Substance: PREDNISOLONE
     Indication: Asthma
     Route: 048
  4. HYDROCORTISONE ACETATE [Suspect]
     Active Substance: HYDROCORTISONE ACETATE
     Indication: Asthma
     Route: 042
  5. IPRATROPIUM [Suspect]
     Active Substance: IPRATROPIUM
     Indication: Asthma
     Route: 065

REACTIONS (4)
  - Drug ineffective [Unknown]
  - Drug hypersensitivity [Recovering/Resolving]
  - Respiratory acidosis [Recovering/Resolving]
  - Hypotension [Recovering/Resolving]
